FAERS Safety Report 5269465-X (Version None)
Quarter: 2007Q1

REPORT INFORMATION
  Report Type: 
  Country: None (occurrence: None)
  Receive Date: 20070320
  Receipt Date: 20070314
  Transmission Date: 20070707
  Serious: Yes (Hospitalization)
  Sender: FDA-Public Use
  Company Number: HQWYE910115MAR07

PATIENT
  Sex: Female
  Weight: 95.34 kg

DRUGS (1)
  1. ADVIL [Suspect]
     Indication: ARTHRALGIA
     Route: 048
     Dates: start: 20060813, end: 20060813

REACTIONS (5)
  - DIARRHOEA [None]
  - ERYTHEMA [None]
  - HYPERSENSITIVITY [None]
  - PRURITUS [None]
  - SYNCOPE [None]
